FAERS Safety Report 14187503 (Version 1)
Quarter: 2017Q4

REPORT INFORMATION
  Report Type: Spontaneous
  Country: BR (occurrence: BR)
  Receive Date: 20171114
  Receipt Date: 20171114
  Transmission Date: 20180321
  Serious: Yes (Other)
  Sender: FDA-Public Use
  Company Number: BR-ABBVIE-17P-020-2163265-00

PATIENT
  Sex: Male
  Weight: 80 kg

DRUGS (8)
  1. RIVOTRIL [Concomitant]
     Active Substance: CLONAZEPAM
     Indication: SEIZURE
     Route: 048
  2. PHENOBARBITAL. [Concomitant]
     Active Substance: PHENOBARBITAL
     Indication: SEIZURE
     Route: 048
     Dates: start: 2013
  3. RISPERIDONE. [Concomitant]
     Active Substance: RISPERIDONE
     Indication: AGGRESSION
     Route: 048
  4. DEPAKOTE [Suspect]
     Active Substance: DIVALPROEX SODIUM
     Indication: SEIZURE
     Route: 048
     Dates: start: 2013
  5. LAMITOR [Concomitant]
     Active Substance: LAMOTRIGINE
     Indication: SEIZURE
     Route: 048
  6. RISPERIDONE. [Concomitant]
     Active Substance: RISPERIDONE
     Indication: AGGRESSION
  7. DEPAKOTE [Suspect]
     Active Substance: DIVALPROEX SODIUM
     Route: 048
     Dates: start: 2013
  8. DEPAKENE [Suspect]
     Active Substance: VALPROIC ACID
     Indication: SEIZURE
     Route: 048
     Dates: start: 201705, end: 201706

REACTIONS (13)
  - Atrophy [Unknown]
  - Spleen disorder [Not Recovered/Not Resolved]
  - Intentional product misuse [Unknown]
  - Underdose [Unknown]
  - Nuchal rigidity [Unknown]
  - Seizure [Unknown]
  - Ocular hyperaemia [Recovered/Resolved]
  - Neck pain [Recovered/Resolved]
  - Therapy cessation [Unknown]
  - Vomiting [Recovering/Resolving]
  - Gallbladder disorder [Unknown]
  - Gastritis [Not Recovered/Not Resolved]
  - Headache [Recovered/Resolved]

NARRATIVE: CASE EVENT DATE: 2013
